FAERS Safety Report 6298677-1 (Version None)
Quarter: 2009Q3

REPORT INFORMATION
  Report Type: 
  Country: None (occurrence: None)
  Receive Date: 20090804
  Receipt Date: 20090720
  Transmission Date: 20100115
  Serious: Yes (Other)
  Sender: FDA-Public Use
  Company Number: PAR_03045_2009

PATIENT
  Sex: Female
  Weight: 51.7101 kg

DRUGS (4)
  1. MEGACE ES [Suspect]
     Indication: DECREASED APPETITE
     Dosage: 650 MG QD, 125 MG/ML ORAL
     Route: 048
     Dates: start: 20090301, end: 20090615
  2. MEGACE ES [Suspect]
     Indication: WEIGHT DECREASED
     Dosage: 650 MG QD, 125 MG/ML ORAL
     Route: 048
     Dates: start: 20090301, end: 20090615
  3. SPIRIVA [Concomitant]
  4. ASMANEX TWISTHALER [Concomitant]

REACTIONS (6)
  - CHRONIC OBSTRUCTIVE PULMONARY DISEASE [None]
  - DIZZINESS [None]
  - HAEMATEMESIS [None]
  - MICTURITION URGENCY [None]
  - SOMNOLENCE [None]
  - URINARY INCONTINENCE [None]
